FAERS Safety Report 9275679 (Version 5)
Quarter: 2014Q4

REPORT INFORMATION
  Report Type: Spontaneous
  Country: FR (occurrence: FR)
  Receive Date: 20130507
  Receipt Date: 20141126
  Transmission Date: 20150529
  Serious: Yes (Hospitalization)
  Sender: FDA-Public Use
  Company Number: FR-VERTEX PHARMACEUTICALS INC-2013-005779

PATIENT
  Age: 52 Year
  Sex: Male

DRUGS (3)
  1. PEGASYS [Suspect]
     Active Substance: PEGINTERFERON ALFA-2A
     Indication: HEPATITIS C RNA
     Dosage: UNK
     Route: 058
     Dates: start: 2004
  2. COPEGUS [Suspect]
     Active Substance: RIBAVIRIN
     Indication: HEPATITIS C RNA
     Dosage: UNK
     Route: 048
  3. INCIVO [Suspect]
     Active Substance: TELAPREVIR
     Indication: HEPATITIS C RNA
     Dosage: 750 MG, TID
     Route: 048
     Dates: start: 20130101, end: 20130320

REACTIONS (4)
  - Rash erythematous [Recovered/Resolved]
  - Off label use [Unknown]
  - Oral disorder [Recovered/Resolved]
  - Pruritus [Recovered/Resolved]

NARRATIVE: CASE EVENT DATE: 20130219
